FAERS Safety Report 5792345-8 (Version None)
Quarter: 2008Q2

REPORT INFORMATION
  Report Type: 
  Country: None (occurrence: None)
  Receive Date: 20080623
  Receipt Date: 20080605
  Transmission Date: 20081010
  Serious: No
  Sender: FDA-Public Use
  Company Number: 8032209

PATIENT
  Age: 7 Year
  Sex: Male
  Weight: 18.5 kg

DRUGS (1)
  1. EQUASYM [Suspect]
     Dosage: 10 MG 2/D

REACTIONS (4)
  - HYPERTONIA [None]
  - MUSCLE RIGIDITY [None]
  - NERVOUSNESS [None]
  - TIC [None]
